FAERS Safety Report 4936457-7 (Version None)
Quarter: 2006Q1

REPORT INFORMATION
  Report Type: 
  Country: None (occurrence: None)
  Receive Date: 20060302
  Receipt Date: 20060227
  Transmission Date: 20060701
  Serious: Yes (Hospitalization)
  Sender: FDA-Public Use
  Company Number: 2006BI000255

PATIENT
  Age: 49 Year
  Sex: Female
  Weight: 63.5036 kg

DRUGS (7)
  1. AVONEX [Suspect]
     Indication: MULTIPLE SCLEROSIS
     Dosage: 30 UG; QW; IM
     Route: 030
     Dates: start: 20050901
  2. OXYCONTIN [Concomitant]
  3. AMBIEN [Concomitant]
  4. TEGRETOL [Concomitant]
  5. CELEXA [Concomitant]
  6. WELLBUTRIN [Concomitant]
  7. CLIMARA [Concomitant]

REACTIONS (2)
  - FUNGAL SEPSIS [None]
  - NEPHROLITHIASIS [None]
